FAERS Safety Report 7807031-X (Version None)
Quarter: 2011Q4

REPORT INFORMATION
  Report Type: 
  Country: None (occurrence: None)
  Receive Date: 20111011
  Receipt Date: 20110926
  Transmission Date: 20120403
  Serious: Yes (Hospitalization, Other)
  Sender: FDA-Public Use
  Company Number: DE-CTI_01385_2011

PATIENT
  Sex: Male

DRUGS (2)
  1. SOLUTIONS FOR PARENTERAL NUTRITION [Concomitant]
     Dosage: DF
  2. CUROSURF [Suspect]
     Indication: NEONATAL RESPIRATORY DISTRESS SYNDROME
     Route: 039
     Dates: start: 20110621, end: 20110621

REACTIONS (4)
  - INTERLEUKIN LEVEL INCREASED [None]
  - THROMBOCYTOPENIA [None]
  - LEUKOPENIA [None]
  - C-REACTIVE PROTEIN INCREASED [None]
